FAERS Safety Report 7198064-8 (Version None)
Quarter: 2010Q4

REPORT INFORMATION
  Report Type: 
  Country: None (occurrence: None)
  Receive Date: 20101227
  Receipt Date: 20101215
  Transmission Date: 20110411
  Serious: Yes (Disabling, Other)
  Sender: FDA-Public Use
  Company Number: HR-JNJFOC-20101207053

PATIENT
  Age: 22 Year
  Sex: Female

DRUGS (15)
  1. ITRACONAZOLE [Suspect]
     Indication: KERATITIS FUNGAL
     Route: 065
  2. LEVOFLOXACIN [Suspect]
     Indication: PROPHYLAXIS
     Dosage: GIVEN FOR A PERIOD OF 2 WEEKS
     Route: 065
  3. ANTIBIOTICS NOS [Suspect]
     Indication: KERATITIS FUNGAL
     Dosage: GIVEN FOR A PERIOD OF 2 WEEKS
     Route: 065
  4. TOPICAL ANTIBIOTICS [Suspect]
     Indication: KERATITIS FUNGAL
     Dosage: GIVEN FOR A PERIOD OF 2 WEEKS
     Route: 065
  5. DIFLUCAN [Suspect]
     Indication: PRODUCT USED FOR UNKNOWN INDICATION
     Dosage: GIVEN FOR A PERIOD OF 2 WEEKS
     Route: 065
  6. DEXAMETHASONE [Suspect]
     Indication: PRODUCT USED FOR UNKNOWN INDICATION
     Dosage: GIVEN FOR A PERIOD OF 2 WEEKS
     Route: 065
  7. ATROPINE [Suspect]
     Indication: PRODUCT USED FOR UNKNOWN INDICATION
     Dosage: GIVEN FOR A PERIOD OF 2 WEEKS
     Route: 057
  8. CHLORHEXIDINE [Suspect]
     Indication: PRODUCT USED FOR UNKNOWN INDICATION
     Dosage: GIVEN FOR A PERIOD OF 2 WEEKS
     Route: 065
  9. BROLENE [Suspect]
     Indication: PRODUCT USED FOR UNKNOWN INDICATION
     Dosage: GIVEN FOR A PERIOD OF 2 WEEKS
     Route: 065
  10. CIPROFLOXACIN [Suspect]
     Indication: PRODUCT USED FOR UNKNOWN INDICATION
     Dosage: GIVEN FOR A PERIOD OF 2 WEEKS
     Route: 042
  11. POLYMYCIN B SULFATE [Suspect]
     Indication: PRODUCT USED FOR UNKNOWN INDICATION
     Dosage: GIVEN FOR A PERIOD OF 2 WEEKS
     Route: 065
  12. NEOMYCIN [Suspect]
     Indication: PRODUCT USED FOR UNKNOWN INDICATION
     Dosage: GIVEN FOR A PERIOD OF 2 WEEKS
     Route: 065
  13. GARAMYCIN [Suspect]
     Indication: PRODUCT USED FOR UNKNOWN INDICATION
     Dosage: GIVEN FOR A PERIOD OF 2 WEEKS
     Route: 042
  14. CEFUROXIME [Suspect]
     Indication: PRODUCT USED FOR UNKNOWN INDICATION
     Dosage: GIVEN FOR A PERIOD OF 2 WEEKS
     Route: 065
  15. VANCOMYCIN [Suspect]
     Indication: PRODUCT USED FOR UNKNOWN INDICATION
     Dosage: GIVEN FOR A PERIOD OF 2 WEEKS
     Route: 065

REACTIONS (4)
  - BLINDNESS [None]
  - CORNEAL DISORDER [None]
  - DRUG INEFFECTIVE [None]
  - ENDOPHTHALMITIS [None]
